FAERS Safety Report 4938708-1 (Version None)
Quarter: 2006Q1

REPORT INFORMATION
  Report Type: 
  Country: None (occurrence: None)
  Receive Date: 20060127
  Receipt Date: 20051221
  Transmission Date: 20060701
  Serious: Yes (Other)
  Sender: FDA-Public Use
  Company Number: 2005153195

PATIENT
  Age: 83 Year
  Sex: Female
  Weight: 81.6475 kg

DRUGS (8)
  1. LYRICA [Suspect]
     Indication: NEUROPATHY
     Dosage: 25 MG (25 MG, 1 IN 1 D)
     Dates: start: 20050101
  2. LESCOL [Concomitant]
  3. HYDROCHLOROTHIAZIDE [Concomitant]
  4. PREVACID [Concomitant]
  5. ALL OTHER THERAPEUTIC PRODUCTS (ALL OTHER THERAPEUTIC PRODUCTS) [Concomitant]
  6. GLYBURIDE [Concomitant]
  7. KLOR-CON [Concomitant]
  8. ALTACE [Concomitant]

REACTIONS (2)
  - ACTIVITIES OF DAILY LIVING IMPAIRED [None]
  - SOMNOLENCE [None]
